FAERS Safety Report 6884670-4 (Version None)
Quarter: 2010Q3

REPORT INFORMATION
  Report Type: 
  Country: None (occurrence: None)
  Receive Date: 20100729
  Receipt Date: 20100715
  Transmission Date: 20110219
  Serious: Yes (Other)
  Sender: FDA-Public Use
  Company Number: PHHY2010DE41252

PATIENT
  Sex: Male

DRUGS (1)
  1. FEMARA [Suspect]
     Indication: BREAST CANCER
     Dosage: 2.5 MG DAILY
     Route: 048
     Dates: start: 20091201, end: 20100701

REACTIONS (8)
  - ANAESTHESIA [None]
  - ASTHENIA [None]
  - DEPRESSION [None]
  - FACIAL PARESIS [None]
  - HOT FLUSH [None]
  - IMMOBILE [None]
  - MONOPARESIS [None]
  - PARAPARESIS [None]
